FAERS Safety Report 4316768-9 (Version None)
Quarter: 2004Q1

REPORT INFORMATION
  Report Type: 
  Country: None (occurrence: None)
  Receive Date: 20040311
  Receipt Date: 20040227
  Transmission Date: 20041129
  Serious: Yes (Hospitalization)
  Sender: FDA-Public Use
  Company Number: HQWYE554726JAN04

PATIENT
  Age: 55 Year
  Sex: Female

DRUGS (6)
  1. MYLOTARG [Suspect]
     Indication: ACUTE MYELOID LEUKAEMIA
     Dosage: 6 MG/M^2 1X PER 1 DAY, INTRAVENOUS
     Route: 042
     Dates: start: 20040114, end: 20040114
  2. PROGRAF [Concomitant]
  3. VORICONAZOLE [Concomitant]
  4. ACYCLOVIR [Concomitant]
  5. ALLOPURINOL [Concomitant]
  6. SEPTRA [Concomitant]

REACTIONS (3)
  - DISEASE RECURRENCE [None]
  - FEBRILE NEUTROPENIA [None]
  - PANCYTOPENIA [None]
